FAERS Safety Report 16377387 (Version 1)
Quarter: 2019Q2

REPORT INFORMATION
  Report Type: Spontaneous
  Country: US (occurrence: US)
  Receive Date: 20190531
  Receipt Date: 20190531
  Transmission Date: 20190711
  Serious: Yes (Other)
  Sender: FDA-Public Use
  Company Number: US-PHARMALEX-2067648

PATIENT

DRUGS (2)
  1. BUPIVACAINE. [Suspect]
     Active Substance: BUPIVACAINE
  2. EXPAREL [Suspect]
     Active Substance: BUPIVACAINE
     Indication: PERIOPERATIVE ANALGESIA

REACTIONS (1)
  - Ileus paralytic [Unknown]
